FAERS Safety Report 4352132-4 (Version None)
Quarter: 2004Q2

REPORT INFORMATION
  Report Type: 
  Country: None (occurrence: None)
  Receive Date: 20040503
  Receipt Date: 20040503
  Transmission Date: 20050107
  Serious: No
  Sender: FDA-Public Use
  Company Number: None

PATIENT

DRUGS (11)
  1. HYDROMORPHONE [Suspect]
     Dosage: INJECTABLE
  2. HYDROMORPHONE [Suspect]
     Dosage: INJECTABLE
  3. MORPHINE SULFATE [Suspect]
     Dosage: INJECTABLE
  4. MORPHINE SULFATE [Suspect]
     Dosage: INJECTABLE
  5. MORPHINE SULFATE [Suspect]
     Dosage: INJECTABLE
  6. MORPHINE SULFATE [Suspect]
     Dosage: INJECTABLE
  7. HEPARIN [Suspect]
     Dosage: INJECTABLE
  8. DIGOXIN [Suspect]
     Dosage: INECTABLE
  9. DEMEROL [Suspect]
     Dosage: INJECTABLE
  10. DEMEROL [Suspect]
     Dosage: INJECTABLE
  11. DEMEROL [Suspect]
     Dosage: INJECTABLE

REACTIONS (1)
  - MEDICATION ERROR [None]
